FAERS Safety Report 21519778 (Version 2)
Quarter: 2023Q1

REPORT INFORMATION
  Report Type: Report from Study
  Country: CA (occurrence: CA)
  Receive Date: 20221028
  Receipt Date: 20230120
  Transmission Date: 20230417
  Serious: Yes (Other)
  Sender: FDA-Public Use
  Company Number: CA-KOREA IPSEN Pharma-2022-29144

PATIENT
  Age: 79 Year
  Sex: Female

DRUGS (19)
  1. LANREOTIDE ACETATE [Suspect]
     Active Substance: LANREOTIDE ACETATE
     Indication: Neuroendocrine tumour
     Dosage: 120 MG EVERY 4 WEEKS
     Route: 058
     Dates: start: 20221014
  2. ELIQUIS [Concomitant]
     Active Substance: APIXABAN
  3. CALCIUM [Concomitant]
     Active Substance: CALCIUM
  4. PANTOPRAZOLE SODIUM [Concomitant]
     Active Substance: PANTOPRAZOLE SODIUM
  5. ATORVASTATIN [Concomitant]
     Active Substance: ATORVASTATIN
  6. CHOLECALCIFEROL [Concomitant]
     Active Substance: CHOLECALCIFEROL
  7. NIFEDIPINE [Concomitant]
     Active Substance: NIFEDIPINE
  8. VALSARTAN [Concomitant]
     Active Substance: VALSARTAN
  9. PREDNISONE [Concomitant]
     Active Substance: PREDNISONE
  10. KENALOG [Concomitant]
     Active Substance: TRIAMCINOLONE ACETONIDE
  11. PINAVERIUM BROMIDE [Concomitant]
     Active Substance: PINAVERIUM BROMIDE
  12. NEXIUM [Concomitant]
     Active Substance: ESOMEPRAZOLE MAGNESIUM
  13. PROLIA [Concomitant]
     Active Substance: DENOSUMAB
     Dosage: Q6 MONTH INJECTION
  14. ZOPICLONE [Concomitant]
     Active Substance: ZOPICLONE
     Dosage: PRN
  15. VITAMINS [Concomitant]
     Active Substance: VITAMINS
  16. VITAMIN D NOS [Concomitant]
     Active Substance: VITAMIN D NOS
  17. CYANOCOBALAMIN [Concomitant]
     Active Substance: CYANOCOBALAMIN
  18. VITAMIN C [Concomitant]
     Active Substance: ASCORBIC ACID
  19. METAMUCIL [Concomitant]
     Active Substance: PLANTAGO SEED

REACTIONS (5)
  - Foot fracture [Unknown]
  - Diarrhoea [Unknown]
  - Abdominal pain [Recovering/Resolving]
  - Diarrhoea [Recovered/Resolved]
  - Abdominal pain [Recovered/Resolved]

NARRATIVE: CASE EVENT DATE: 20221001
